FAERS Safety Report 15651977 (Version 4)
Quarter: 2023Q2

REPORT INFORMATION
  Report Type: Spontaneous
  Country: US (occurrence: US)
  Receive Date: 20181123
  Receipt Date: 20230504
  Transmission Date: 20230721
  Serious: Yes (Other)
  Sender: FDA-Public Use
  Company Number: US-GILEAD-2018-0375835

PATIENT
  Age: 43 Year
  Sex: Male
  Weight: 117.01 kg

DRUGS (38)
  1. VIREAD [Suspect]
     Active Substance: TENOFOVIR DISOPROXIL FUMARATE
     Indication: HIV infection
     Dosage: UNK
     Route: 048
     Dates: start: 2001, end: 2012
  2. TRUVADA [Suspect]
     Active Substance: EMTRICITABINE\TENOFOVIR DISOPROXIL FUMARATE
     Indication: HIV infection
     Dosage: UNK
     Route: 048
     Dates: start: 2012, end: 2015
  3. TRUVADA [Suspect]
     Active Substance: EMTRICITABINE\TENOFOVIR DISOPROXIL FUMARATE
     Dosage: UNK
     Route: 048
     Dates: start: 2012
  4. ATRIPLA [Suspect]
     Active Substance: EFAVIRENZ\EMTRICITABINE\TENOFOVIR DISOPROXIL FUMARATE
     Indication: HIV infection
     Dosage: UNK
     Route: 048
     Dates: start: 2011, end: 2017
  5. ATRIPLA [Suspect]
     Active Substance: EFAVIRENZ\EMTRICITABINE\TENOFOVIR DISOPROXIL FUMARATE
     Dosage: UNK
     Route: 048
     Dates: start: 2012, end: 2017
  6. STRIBILD [Suspect]
     Active Substance: COBICISTAT\ELVITEGRAVIR\EMTRICITABINE\TENOFOVIR DISOPROXIL FUMARATE
     Indication: HIV infection
     Dosage: UNK
     Route: 048
     Dates: start: 2017
  7. STRIBILD [Suspect]
     Active Substance: COBICISTAT\ELVITEGRAVIR\EMTRICITABINE\TENOFOVIR DISOPROXIL FUMARATE
     Dosage: UNK
     Route: 048
     Dates: start: 2017, end: 201904
  8. COMPLERA [Suspect]
     Active Substance: EMTRICITABINE\RILPIVIRINE HYDROCHLORIDE\TENOFOVIR DISOPROXIL FUMARATE
     Indication: HIV infection
     Dosage: UNK
     Route: 048
     Dates: start: 2011, end: 2012
  9. CALCIUM [Concomitant]
     Active Substance: CALCIUM
     Indication: Bone density decreased
     Dosage: UNK
     Dates: start: 2017
  10. LEVETIRACETAM [Concomitant]
     Active Substance: LEVETIRACETAM
     Indication: Seizure
     Dosage: UNK
     Dates: start: 1999
  11. BIKTARVY [Concomitant]
     Active Substance: BICTEGRAVIR SODIUM\EMTRICITABINE\TENOFOVIR ALAFENAMIDE FUMARATE
  12. EDURANT [Concomitant]
     Active Substance: RILPIVIRINE HYDROCHLORIDE
     Indication: HIV infection
  13. EPIVIR [Concomitant]
     Active Substance: LAMIVUDINE
     Indication: HIV infection
     Dosage: UNK
  14. INVIRASE [Concomitant]
     Active Substance: SAQUINAVIR MESYLATE
     Indication: HIV infection
  15. ISENTRESS [Concomitant]
     Active Substance: RALTEGRAVIR POTASSIUM
  16. KALETRA [Concomitant]
     Active Substance: LOPINAVIR\RITONAVIR
     Indication: HIV infection
  17. SUSTIVA [Concomitant]
     Active Substance: EFAVIRENZ
     Indication: HIV infection
  18. VIDEX [Concomitant]
     Active Substance: DIDANOSINE
     Indication: HIV infection
  19. VIDEX EC [Concomitant]
     Active Substance: DIDANOSINE
     Indication: HIV infection
  20. VIRACEPT [Concomitant]
     Active Substance: NELFINAVIR MESYLATE
     Indication: HIV infection
  21. ACETAMINOPHEN [Concomitant]
     Active Substance: ACETAMINOPHEN
     Indication: Pain
  22. AMLODIPINE [Concomitant]
     Active Substance: AMLODIPINE BESYLATE
     Indication: Hypertension
  23. DILANTIN [Concomitant]
     Active Substance: PHENYTOIN
     Indication: Seizure
  24. FLUCONAZOLE [Concomitant]
     Active Substance: FLUCONAZOLE
     Indication: Product used for unknown indication
  25. GABAPENTIN [Concomitant]
     Active Substance: GABAPENTIN
     Indication: Neuropathy peripheral
  26. IBUPROFEN [Concomitant]
     Active Substance: IBUPROFEN
     Indication: Pain
     Dosage: UNK
     Dates: start: 2017
  27. KEPPRA [Concomitant]
     Active Substance: LEVETIRACETAM
     Indication: Seizure
     Dosage: UNK
     Dates: start: 2012, end: 2016
  28. LIDOCAINE [Concomitant]
     Active Substance: LIDOCAINE
     Indication: Pain
     Dosage: UNK
     Dates: start: 2019
  29. LISINOPRIL [Concomitant]
     Active Substance: LISINOPRIL
     Indication: Hypertension
     Dosage: UNK
     Dates: start: 2019
  30. LOSARTAN [Concomitant]
     Active Substance: LOSARTAN
     Indication: Hypertension
     Dosage: UNK
     Dates: start: 2017
  31. MINERALS\VITAMINS [Concomitant]
     Active Substance: MINERALS\VITAMINS
     Indication: Vitamin supplementation
     Dosage: UNK
     Dates: start: 2016
  32. PROAIR HFA [Concomitant]
     Active Substance: ALBUTEROL SULFATE
     Indication: Asthma
     Dosage: UNK
     Dates: start: 2017
  33. TELMISARTAN [Concomitant]
     Active Substance: TELMISARTAN
     Indication: Hypertension
     Dosage: UNK
     Dates: start: 2019
  34. VENTOLIN [Concomitant]
     Active Substance: ALBUTEROL SULFATE
     Indication: Asthma
     Dosage: UNK
     Dates: start: 20170101, end: 20190101
  35. VIMPAT [Concomitant]
     Active Substance: LACOSAMIDE
     Indication: Seizure
     Dosage: UNK
     Dates: start: 2018, end: 2019
  36. VITAMIN D NOS [Concomitant]
     Active Substance: VITAMIN D NOS
     Indication: Vitamin D deficiency
     Dosage: UNK
     Dates: start: 2015
  37. FOSAMAX [Concomitant]
     Active Substance: ALENDRONATE SODIUM
  38. VIAGRA [Concomitant]
     Active Substance: SILDENAFIL CITRATE

REACTIONS (9)
  - Osteoporosis [Not Recovered/Not Resolved]
  - Foot fracture [Unknown]
  - Spinal compression fracture [Not Recovered/Not Resolved]
  - Bone density decreased [Not Recovered/Not Resolved]
  - Pain [Not Recovered/Not Resolved]
  - Emotional distress [Unknown]
  - Anxiety [Unknown]
  - Anhedonia [Unknown]
  - Economic problem [Unknown]

NARRATIVE: CASE EVENT DATE: 20130801
